FAERS Safety Report 14995682 (Version 1)
Quarter: 2018Q2

REPORT INFORMATION
  Report Type: Spontaneous
  Country: US (occurrence: US)
  Receive Date: 20180521
  Receipt Date: 20180521
  Transmission Date: 20180711
  Serious: Yes (Other)
  Sender: FDA-Public Use
  Company Number: None

PATIENT
  Age: 52 Year
  Sex: Female
  Weight: 97.4 kg

DRUGS (11)
  1. RANITIDINE (ZANTAC) 75 MG [Concomitant]
  2. TRAMADOL (ULTRAM) 50 MG PRN [Concomitant]
  3. FERAHEME [Suspect]
     Active Substance: FERUMOXYTOL NON-STOICHIOMETRIC MAGNETITE
     Indication: IRON DEFICIENCY
     Route: 041
     Dates: start: 20180515, end: 20180515
  4. ACETAMINOPHEN (TYLENOL) 650 MG [Concomitant]
  5. LISINOPRIL 20 MG [Concomitant]
     Active Substance: LISINOPRIL
     Dates: start: 20180423
  6. LEVOCETIRIZINE (XYZAL) 5 MG PRN [Concomitant]
     Dates: start: 20180423
  7. TRICOR [Concomitant]
     Active Substance: FENOFIBRATE
     Dates: start: 20180511
  8. AMLODIPINE (NORVASC) 5 MG [Concomitant]
     Dates: start: 20180423
  9. ATORVASTATIN (LIPITOR) 20 MG [Concomitant]
     Dates: start: 20180511
  10. FERROUS SULFATE 325 MG [Concomitant]
     Dates: start: 20180423
  11. ESTRADIOL (ESTRACE) 2 MG [Concomitant]

REACTIONS (4)
  - Dyspnoea [None]
  - Infusion related reaction [None]
  - Hyperhidrosis [None]
  - Nausea [None]

NARRATIVE: CASE EVENT DATE: 20180515
